FAERS Safety Report 9963132 (Version 1)
Quarter: 2014Q1

REPORT INFORMATION
  Report Type: Spontaneous
  Country: US (occurrence: US)
  Receive Date: 20140305
  Receipt Date: 20140305
  Transmission Date: 20141002
  Serious: Yes (Death, Hospitalization)
  Sender: FDA-Public Use
  Company Number: US-BAXTER-2014BAX010112

PATIENT
  Sex: Female

DRUGS (1)
  1. DIANEAL LOW CALCIUM [Suspect]
     Indication: PERITONEAL DIALYSIS
     Route: 033
     Dates: start: 20130109

REACTIONS (5)
  - Peritonitis [Fatal]
  - Cystitis [Fatal]
  - Colitis [Fatal]
  - Clostridium difficile infection [Fatal]
  - Functional gastrointestinal disorder [Fatal]
